FAERS Safety Report 12988078 (Version 1)
Quarter: 2016Q4

REPORT INFORMATION
  Report Type: Report from Study
  Country: JP (occurrence: JP)
  Receive Date: 20161130
  Receipt Date: 20161130
  Transmission Date: 20170207
  Serious: Yes (Death)
  Sender: FDA-Public Use
  Company Number: JP-MYLANLABS-2016M1051846

PATIENT

DRUGS (5)
  1. DEXAMETHASONE. [Concomitant]
     Active Substance: DEXAMETHASONE
     Indication: SMALL CELL LUNG CANCER
     Route: 065
  2. CISPLATIN. [Suspect]
     Active Substance: CISPLATIN
     Indication: SMALL CELL LUNG CANCER
     Dosage: 20MG/M2, DAYS 1-3, DILUTED IN 300 ML OF PHYSIOLOGICAL SALINE OVER 1 HOUR
     Route: 041
  3. TOPOTECAN [Suspect]
     Active Substance: TOPOTECAN HYDROCHLORIDE
     Indication: SMALL CELL LUNG CANCER
     Dosage: 1 MG/M2, DAYS 1-3, DILUTED IN 100 ML OF PHYSIOLOGICAL SALINE FOR 30 MINUTES
     Route: 041
  4. SODIUM CHLORIDE. [Concomitant]
     Active Substance: SODIUM CHLORIDE
     Indication: PRODUCT USED FOR UNKNOWN INDICATION
     Dosage: 100ML DILUTED WITH TOPOTECAN
     Route: 041
  5. SODIUM CHLORIDE. [Concomitant]
     Active Substance: SODIUM CHLORIDE
     Dosage: 300ML DILUTED WITH CISPLATIN
     Route: 041

REACTIONS (2)
  - Hepatotoxicity [Fatal]
  - Multiple organ dysfunction syndrome [Fatal]
